FAERS Safety Report 17277671 (Version 2)
Quarter: 2020Q1

REPORT INFORMATION
  Report Type: Report from Study
  Country: GB (occurrence: GB)
  Receive Date: 20200116
  Receipt Date: 20200203
  Transmission Date: 20200409
  Serious: Yes (Other)
  Sender: FDA-Public Use
  Company Number: GB-AMERICAN REGENT INC-2020000099

PATIENT
  Sex: Female

DRUGS (1)
  1. FERINJECT [Suspect]
     Active Substance: FERRIC CARBOXYMALTOSE
     Indication: NEPHROGENIC ANAEMIA
     Dosage: 1000 MG DILUTED WITH 20 ML IN 250 ML STERILE 0.9% NACL SOLUTION
     Dates: start: 20191204, end: 20191204

REACTIONS (3)
  - Infusion site extravasation [Recovered/Resolved]
  - Infusion site discolouration [Recovering/Resolving]
  - Vein rupture [Unknown]

NARRATIVE: CASE EVENT DATE: 20191204
